FAERS Safety Report 10162360 (Version 1)
Quarter: 2014Q2

REPORT INFORMATION
  Report Type: Report from Study
  Country: DE (occurrence: DE)
  Receive Date: 20140509
  Receipt Date: 20140509
  Transmission Date: 20141212
  Serious: Yes (Other)
  Sender: FDA-Public Use
  Company Number: DE-SA-2014SA059146

PATIENT
  Sex: 0

DRUGS (6)
  1. CISPLATIN [Suspect]
     Indication: PANCREATIC CARCINOMA
     Dosage: ON DAY 1 AND 8 EVERY 3 WEEKS (90 MIN)
     Route: 065
  2. ENOXAPARIN SODIUM [Suspect]
     Indication: THROMBOSIS PROPHYLAXIS
     Dosage: STARTED ON DAY 1 OF CHEMOTHERAPY
     Route: 058
  3. GEMCITABINE [Suspect]
     Indication: PANCREATIC CARCINOMA
     Dosage: FOR 30 MIN, EVERY THREE WEEKS DOSE:1 GRAM(S)/SQUARE METER
     Route: 065
  4. FOLINIC ACID [Suspect]
     Indication: PANCREATIC CARCINOMA
     Dosage: 30 MIN, EVERY THREE WEEKS
     Route: 065
  5. FLUOROURACIL [Suspect]
     Indication: PANCREATIC CARCINOMA
     Dosage: 24 H, EVERY THREE WEEKS
     Route: 065
  6. HEPARIN [Concomitant]
     Route: 058

REACTIONS (2)
  - Deep vein thrombosis [Unknown]
  - Pulmonary embolism [Unknown]
